FAERS Safety Report 16087003 (Version 1)
Quarter: 2019Q1

REPORT INFORMATION
  Report Type: Spontaneous
  Country: BR (occurrence: BR)
  Receive Date: 20190318
  Receipt Date: 20190318
  Transmission Date: 20190418
  Serious: Yes (Other)
  Sender: FDA-Public Use
  Company Number: BR-WHANIN PHARM. CO., LTD.-2019M1024632

PATIENT
  Sex: Male
  Weight: 50 kg

DRUGS (2)
  1. LEPONEX 100 MG [Suspect]
     Active Substance: CLOZAPINE
     Indication: SCHIZOPHRENIA
     Dosage: UNK, AM
     Route: 048
  2. LEPONEX 100 MG [Suspect]
     Active Substance: CLOZAPINE
     Dosage: UNK, PM
     Route: 048

REACTIONS (2)
  - Schizophrenia [Unknown]
  - Product dose omission [Unknown]
